FAERS Safety Report 8271736-X (Version None)
Quarter: 2012Q2

REPORT INFORMATION
  Report Type: 
  Country: None (occurrence: None)
  Receive Date: 20120410
  Receipt Date: 20120403
  Transmission Date: 20120825
  Serious: No
  Sender: FDA-Public Use
  Company Number: US-B.I. PHARMACEUTICALS,INC./RIDGEFIELD-2012-BP-06237BP

PATIENT
  Sex: Female

DRUGS (11)
  1. PRADAXA [Suspect]
     Indication: ATRIAL FIBRILLATION
     Dosage: 300 MG
     Route: 048
     Dates: start: 20120101
  2. HYDROCHLOROTHIAZIDE [Concomitant]
     Dosage: 25 MG
     Route: 048
  3. MULTI-VITAMIN [Concomitant]
     Route: 048
  4. VITAMIN D [Concomitant]
     Indication: SUPPLEMENTATION THERAPY
     Dosage: 2000 MG
     Route: 048
  5. SERTRALINE HYDROCHLORIDE [Concomitant]
     Dosage: 25 MG
     Route: 048
  6. ENALAPRIL MALEATE [Concomitant]
     Dosage: 10 MG
     Route: 048
  7. FLECAINIDE ACETATE [Concomitant]
     Dosage: 100 MG
     Route: 048
  8. ASPIRIN [Concomitant]
     Dosage: 81 MG
     Route: 048
  9. FISH OIL [Concomitant]
     Dosage: 2000 MG
     Route: 048
  10. TYLENOL (CAPLET) [Concomitant]
     Route: 048
  11. METOPROLOL TARTRATE [Concomitant]
     Dosage: 100 MG
     Route: 048

REACTIONS (3)
  - HEADACHE [None]
  - WHEEZING [None]
  - ABDOMINAL DISCOMFORT [None]
